FAERS Safety Report 5368143-6 (Version None)
Quarter: 2007Q2

REPORT INFORMATION
  Report Type: 
  Country: None (occurrence: None)
  Receive Date: 20070620
  Receipt Date: 20070607
  Transmission Date: 20071010
  Serious: Yes (Other)
  Sender: FDA-Public Use
  Company Number: 157256USA

PATIENT
  Age: 58 Year
  Sex: Female

DRUGS (2)
  1. FLUCONAZOLE [Suspect]
     Indication: FUNGAL INFECTION
     Dosage: 150 MG
     Dates: start: 20070313
  2. METRONDAZOLE [Suspect]
     Dates: start: 20070405

REACTIONS (10)
  - ASTHENIA [None]
  - DIABETES MELLITUS NON-INSULIN-DEPENDENT [None]
  - DRUG INEFFECTIVE [None]
  - DYSGEUSIA [None]
  - FATIGUE [None]
  - FUNGAL INFECTION [None]
  - RASH ERYTHEMATOUS [None]
  - RASH PAPULAR [None]
  - THIRST [None]
  - VISION BLURRED [None]
